FAERS Safety Report 7913429-1 (Version None)
Quarter: 2011Q4

REPORT INFORMATION
  Report Type: 
  Country: None (occurrence: None)
  Receive Date: 20111115
  Receipt Date: 20110902
  Transmission Date: 20120403
  Serious: Yes (Hospitalization)
  Sender: FDA-Public Use
  Company Number: 2009BI036970

PATIENT
  Age: 51 Year
  Sex: Female

DRUGS (1)
  1. TYSABRI [Suspect]
     Indication: MULTIPLE SCLEROSIS
     Route: 042
     Dates: start: 20070625

REACTIONS (6)
  - UPPER LIMB FRACTURE [None]
  - POOR VENOUS ACCESS [None]
  - DECREASED APPETITE [None]
  - BALANCE DISORDER [None]
  - FALL [None]
  - WEIGHT DECREASED [None]
